FAERS Safety Report 15963010 (Version 1)
Quarter: 2019Q1

REPORT INFORMATION
  Report Type: Spontaneous
  Country: GB (occurrence: FR)
  Receive Date: 20190214
  Receipt Date: 20190214
  Transmission Date: 20190417
  Serious: Yes (Hospitalization)
  Sender: FDA-Public Use
  Company Number: FR-FRESENIUS KABI-FK201901454

PATIENT
  Age: 63 Year
  Sex: Male

DRUGS (3)
  1. PROPOFOL (MANUFACTURER UNKNOWN) [Suspect]
     Active Substance: PROPOFOL
     Indication: GENERAL ANAESTHESIA
     Route: 042
     Dates: start: 20180806, end: 20180806
  2. ROCURONIUM BROMIDE. [Suspect]
     Active Substance: ROCURONIUM BROMIDE
     Indication: GENERAL ANAESTHESIA
     Route: 042
     Dates: start: 20180806, end: 20180806
  3. REMIFENTANIL HYDROCHLORIDE. [Suspect]
     Active Substance: REMIFENTANIL HYDROCHLORIDE
     Indication: GENERAL ANAESTHESIA
     Route: 042
     Dates: start: 20180806, end: 20180806

REACTIONS (1)
  - Anaphylactic shock [Recovered/Resolved]

NARRATIVE: CASE EVENT DATE: 20180806
